FAERS Safety Report 19924258 (Version 5)
Quarter: 2022Q1

REPORT INFORMATION
  Report Type: Report from Study
  Country: TW (occurrence: TW)
  Receive Date: 20211006
  Receipt Date: 20220315
  Transmission Date: 20220424
  Serious: Yes (Other)
  Sender: FDA-Public Use
  Company Number: TW-BAYER-2021-207675

PATIENT
  Age: 72 Year
  Sex: Male

DRUGS (8)
  1. EYLEA [Suspect]
     Active Substance: AFLIBERCEPT
     Indication: Neovascular age-related macular degeneration
     Dosage: 0.2 ML, ONCE, RIGHT EYE
     Route: 031
     Dates: start: 20210430, end: 20210430
  2. EYLEA [Suspect]
     Active Substance: AFLIBERCEPT
     Dosage: 0.2ML , ONCE, RIGHT EYE
     Route: 031
     Dates: start: 20210602, end: 20210602
  3. EYLEA [Suspect]
     Active Substance: AFLIBERCEPT
     Dosage: 0.2ML, ONCE, RIGHT EYE
     Route: 031
     Dates: start: 20210705, end: 20210705
  4. EYLEA [Suspect]
     Active Substance: AFLIBERCEPT
     Dosage: 0.2ML, ONCE, RIGHT EYE
     Route: 031
     Dates: start: 20210830, end: 20210830
  5. EYLEA [Suspect]
     Active Substance: AFLIBERCEPT
     Dosage: 0.2ML, ONCE, RIGHT EYE
     Route: 031
     Dates: start: 20210927, end: 20210927
  6. EYLEA [Suspect]
     Active Substance: AFLIBERCEPT
     Dosage: 0.2ML, ONCE, RIGHT EYE
     Route: 031
     Dates: start: 20211026, end: 20211026
  7. EYLEA [Suspect]
     Active Substance: AFLIBERCEPT
     Dosage: 0.2ML, ONCE, RIGHT EYE
     Route: 031
     Dates: start: 20211223, end: 20211223
  8. EYLEA [Suspect]
     Active Substance: AFLIBERCEPT
     Dosage: 0.2 ML, ONCE
     Route: 031
     Dates: start: 20220302

REACTIONS (9)
  - Blindness transient [Recovered/Resolved]
  - Product prescribing issue [Unknown]
  - Inappropriate schedule of product administration [Unknown]
  - Visual acuity reduced [Unknown]
  - Vision blurred [Unknown]
  - Depressed mood [Not Recovered/Not Resolved]
  - Asthenia [Not Recovered/Not Resolved]
  - Depression [Recovering/Resolving]
  - Drooling [Recovering/Resolving]

NARRATIVE: CASE EVENT DATE: 20210430
